FAERS Safety Report 9286834 (Version 1)
Quarter: 2013Q2

REPORT INFORMATION
  Report Type: Spontaneous
  Country: US (occurrence: US)
  Receive Date: 20130513
  Receipt Date: 20130513
  Transmission Date: 20140414
  Serious: No
  Sender: FDA-Public Use
  Company Number: US-PFIZER INC-2013144445

PATIENT
  Age: 74 Year
  Sex: Female
  Weight: 83.9 kg

DRUGS (3)
  1. TOVIAZ [Suspect]
     Indication: NOCTURIA
     Dosage: 04 MG, 1X/DAY
     Route: 048
     Dates: start: 2012
  2. TOVIAZ [Suspect]
     Dosage: 4 MG, ALTERNATE DAY
     Route: 048
  3. METHADONE [Concomitant]
     Indication: PAIN
     Dosage: UNK

REACTIONS (3)
  - Inappropriate schedule of drug administration [Unknown]
  - Drug prescribing error [Unknown]
  - Dysuria [Not Recovered/Not Resolved]
